FAERS Safety Report 21368479 (Version 5)
Quarter: 2022Q4

REPORT INFORMATION
  Report Type: Report from Study
  Country: ZA (occurrence: ZA)
  Receive Date: 20220923
  Receipt Date: 20221212
  Transmission Date: 20230112
  Serious: Yes (Other)
  Sender: FDA-Public Use
  Company Number: ZA-NOVARTISPH-NVSC2022ZA214421

PATIENT
  Age: 77 Year
  Sex: Female

DRUGS (2)
  1. BROLUCIZUMAB [Suspect]
     Active Substance: BROLUCIZUMAB
     Indication: Neovascular age-related macular degeneration
     Dosage: 27.6 MG, QMO (27.6MG IN 0.23ML)
     Route: 047
     Dates: start: 20211221
  2. BROLUCIZUMAB [Suspect]
     Active Substance: BROLUCIZUMAB
     Dosage: 27.6 MG, QMO (27.6MG IN 0.23ML)
     Route: 047
     Dates: start: 20220121

REACTIONS (3)
  - Cervix carcinoma [Unknown]
  - Internal haemorrhage [Unknown]
  - Illness [Not Recovered/Not Resolved]
